FAERS Safety Report 6466669-5 (Version None)
Quarter: 2009Q4

REPORT INFORMATION
  Report Type: 
  Country: None (occurrence: None)
  Receive Date: 20091127
  Receipt Date: 20091120
  Transmission Date: 20100525
  Serious: Yes (Other)
  Sender: FDA-Public Use
  Company Number: 2009AL007388

PATIENT
  Age: 12 Year
  Sex: Female

DRUGS (3)
  1. AMANTADINE HCL [Suspect]
     Dosage: 100 MG; BID;
     Dates: start: 20060501
  2. BUPROPION HCL [Concomitant]
  3. QUETIAPINE FUMARATE [Concomitant]

REACTIONS (5)
  - ATTENTION DEFICIT/HYPERACTIVITY DISORDER [None]
  - BLINDNESS TRANSIENT [None]
  - CONDITION AGGRAVATED [None]
  - CORNEAL DISORDER [None]
  - CORNEAL OEDEMA [None]
